FAERS Safety Report 22111347 (Version 1)
Quarter: 2023Q1

REPORT INFORMATION
  Report Type: Spontaneous
  Country: GB (occurrence: GB)
  Receive Date: 20230317
  Receipt Date: 20230317
  Transmission Date: 20230417
  Serious: Yes (Other)
  Sender: FDA-Public Use
  Company Number: GB-BIOGEN-2023BI01193357

PATIENT
  Age: 2 Year
  Sex: Male
  Weight: 13 kg

DRUGS (10)
  1. SPINRAZA [Suspect]
     Active Substance: NUSINERSEN
     Indication: Spinal muscular atrophy
     Dosage: 12 MG LOADING DOSES THEN 4 MONTHLY, INTRATHECALLY
     Route: 050
     Dates: start: 20200204, end: 20201201
  2. SPINRAZA [Suspect]
     Active Substance: NUSINERSEN
     Route: 050
     Dates: start: 20210706
  3. SPINRAZA [Suspect]
     Active Substance: NUSINERSEN
     Route: 050
     Dates: start: 20210803
  4. SPINRAZA [Suspect]
     Active Substance: NUSINERSEN
     Route: 050
     Dates: start: 20211207
  5. sterineb saline [Concomitant]
     Indication: Product used for unknown indication
     Route: 050
  6. VITAMIN D [Concomitant]
     Active Substance: VITAMIN D NOS
     Indication: Product used for unknown indication
     Route: 050
  7. VITAMINS [Concomitant]
     Active Substance: VITAMINS
     Indication: Product used for unknown indication
     Route: 050
  8. neocate jr [Concomitant]
     Indication: Product used for unknown indication
     Route: 050
  9. OMEGA 3 [Concomitant]
     Active Substance: CAPSAICIN
     Indication: Product used for unknown indication
     Route: 050
  10. Colomycin [Concomitant]
     Indication: Pseudomonas infection
     Route: 050

REACTIONS (7)
  - Nephrolithiasis [Not Recovered/Not Resolved]
  - Hydronephrosis [Not Recovered/Not Resolved]
  - Anxiety [Unknown]
  - Osteopenia [Unknown]
  - Asthenia [Unknown]
  - Mobility decreased [Unknown]
  - Pelvi-ureteric obstruction [Unknown]

NARRATIVE: CASE EVENT DATE: 20220601
